FAERS Safety Report 7571486-9 (Version None)
Quarter: 2011Q2

REPORT INFORMATION
  Report Type: 
  Country: None (occurrence: None)
  Receive Date: 20110624
  Receipt Date: 20110614
  Transmission Date: 20111010
  Serious: No
  Sender: FDA-Public Use
  Company Number: US-PFIZER INC-2011130433

PATIENT
  Sex: Male
  Weight: 85 kg

DRUGS (1)
  1. SUTENT [Suspect]
     Indication: GASTROINTESTINAL STROMAL TUMOUR
     Dosage: 25 MG, 1X/DAY
     Route: 048
     Dates: start: 20110401, end: 20110101

REACTIONS (5)
  - GASTROINTESTINAL STROMAL TUMOUR [None]
  - GLOSSITIS [None]
  - STOMATITIS [None]
  - DISEASE PROGRESSION [None]
  - ORAL DISCOMFORT [None]
